FAERS Safety Report 12644849 (Version 1)
Quarter: 2016Q3

REPORT INFORMATION
  Report Type: Spontaneous
  Country: US (occurrence: US)
  Receive Date: 20160811
  Receipt Date: 20160811
  Transmission Date: 20161109
  Serious: No
  Sender: FDA-Public Use
  Company Number: US-BAYER-2016-155704

PATIENT
  Sex: Male

DRUGS (1)
  1. GADAVIST [Suspect]
     Active Substance: GADOBUTROL
     Dosage: 85 ML, ONCE
     Dates: start: 20160725, end: 20160725

REACTIONS (2)
  - Pruritus [Recovered/Resolved]
  - Eye swelling [Recovered/Resolved]
